FAERS Safety Report 23318826 (Version 1)
Quarter: 2023Q4

REPORT INFORMATION
  Report Type: Spontaneous
  Country: US (occurrence: US)
  Receive Date: 20231220
  Receipt Date: 20231220
  Transmission Date: 20240109
  Serious: No
  Sender: FDA-Public Use
  Company Number: US-LUPIN PHARMACEUTICALS INC.-2023-11345

PATIENT

DRUGS (1)
  1. ALBUTEROL SULFATE [Suspect]
     Active Substance: ALBUTEROL SULFATE
     Indication: Chronic obstructive pulmonary disease
     Dosage: UNK,8 PUFFS A DAY AS NEEDED
     Dates: start: 20231129

REACTIONS (3)
  - Drug dose omission by device [Unknown]
  - Wrong technique in product usage process [Unknown]
  - No adverse event [Unknown]
